FAERS Safety Report 9357438 (Version 1)
Quarter: 2013Q2

REPORT INFORMATION
  Report Type: Spontaneous
  Country: KE (occurrence: KE)
  Receive Date: 20130620
  Receipt Date: 20130620
  Transmission Date: 20140414
  Serious: Yes (Other)
  Sender: FDA-Public Use
  Company Number: KE-JNJFOC-20130609417

PATIENT
  Age: 3 Decade
  Sex: Female

DRUGS (6)
  1. XARELTO [Suspect]
     Indication: PULMONARY EMBOLISM
     Route: 048
  2. XARELTO [Suspect]
     Indication: PULMONARY EMBOLISM
     Route: 048
  3. XARELTO [Suspect]
     Indication: PULMONARY EMBOLISM
     Route: 048
  4. XARELTO [Suspect]
     Indication: DEEP VEIN THROMBOSIS
     Route: 048
  5. XARELTO [Suspect]
     Indication: DEEP VEIN THROMBOSIS
     Route: 048
  6. XARELTO [Suspect]
     Indication: DEEP VEIN THROMBOSIS
     Route: 048

REACTIONS (1)
  - Deep vein thrombosis [Unknown]
